FAERS Safety Report 10951104 (Version 2)
Quarter: 2015Q2

REPORT INFORMATION
  Report Type: Spontaneous
  Country: FR (occurrence: FR)
  Receive Date: 20150324
  Receipt Date: 20150408
  Transmission Date: 20150821
  Serious: Yes (Life-Threatening, Other)
  Sender: FDA-Public Use
  Company Number: FR-MALLINCKRODT-T201501738

PATIENT
  Age: 79 Year
  Sex: Male

DRUGS (9)
  1. DIGOXIN. [Suspect]
     Active Substance: DIGOXIN
     Indication: ATRIAL FIBRILLATION
     Dosage: UNK
     Route: 042
     Dates: start: 20150225
  2. BISOPROLOL [Concomitant]
     Active Substance: BISOPROLOL
  3. LOXEN [Suspect]
     Active Substance: NICARDIPINE HYDROCHLORIDE
     Indication: ATRIAL FIBRILLATION
     Dosage: 2 MG, UNK
     Route: 042
     Dates: start: 20150225
  4. OFIRMEV [Suspect]
     Active Substance: ACETAMINOPHEN
     Indication: ATRIAL FIBRILLATION
     Dosage: UNK
     Route: 042
     Dates: start: 20150225
  5. SALBUTAMOL [Concomitant]
     Active Substance: ALBUTEROL
  6. SIMVASTATIN. [Concomitant]
     Active Substance: SIMVASTATIN
  7. PLAVIX [Concomitant]
     Active Substance: CLOPIDOGREL BISULFATE
  8. ACTILYSE [Suspect]
     Active Substance: ALTEPLASE
     Indication: THROMBOSIS
     Dosage: 53.1 MG, UNK
     Route: 042
     Dates: start: 20150225
  9. MONTELUKAST [Concomitant]
     Active Substance: MONTELUKAST SODIUM

REACTIONS (2)
  - Off label use [Unknown]
  - Angioedema [Recovered/Resolved]

NARRATIVE: CASE EVENT DATE: 20150225
